FAERS Safety Report 26097421 (Version 1)
Quarter: 2025Q4

REPORT INFORMATION
  Report Type: Spontaneous
  Country: AU (occurrence: AU)
  Receive Date: 20251127
  Receipt Date: 20251127
  Transmission Date: 20260117
  Serious: Yes (Other)
  Sender: ELI LILLY AND COMPANY
  Company Number: AU-ELI_LILLY_AND_COMPANY-AU202511025205

PATIENT
  Age: 50 Year
  Sex: Female

DRUGS (2)
  1. HUMULIN R [Suspect]
     Active Substance: INSULIN HUMAN
     Indication: Type 1 diabetes mellitus
     Dosage: 6 U, TID
     Route: 065
  2. HUMALOG MIX50/50 [Suspect]
     Active Substance: INSULIN LISPRO
     Indication: Type 1 diabetes mellitus
     Dosage: 16 U, EACH MORNING
     Route: 065

REACTIONS (8)
  - Breast cancer [Unknown]
  - Optic neuritis [Unknown]
  - Brain fog [Unknown]
  - Mental fatigue [Unknown]
  - Blood glucose abnormal [Unknown]
  - Illness [Unknown]
  - Autoimmune disorder [Unknown]
  - Blood glucose increased [Unknown]
